FAERS Safety Report 8404111 (Version 2)
Quarter: 2013Q2

REPORT INFORMATION
  Report Type: Spontaneous
  Country: US (occurrence: None)
  Receive Date: 20111227
  Receipt Date: 20120426
  Transmission Date: 20140414
  Serious: Yes (Other)
  Sender: FDA-Public Use
  Company Number: PHEH2011US009127

PATIENT
  Age: 32 Year
  Sex: Female
  Weight: 96.6 kg

DRUGS (8)
  1. GILENYA [Suspect]
     Indication: RELAPSING-REMITTING MULTIPLE SCLEROSIS
     Dosage: 0.5 MG, QD, ORAL
     Route: 048
     Dates: start: 20110927, end: 20111108
  2. VERAPAMIL [Concomitant]
  3. VESICARE (SOLIFENACIN) [Concomitant]
  4. TOPAMAX (TOPIRAMATE) [Concomitant]
  5. CELECOXIB [Concomitant]
  6. PLAQUENIL (HYDROXYCHLOROQUINE SULFATE) / ORAL / TABLET, FILM COATED / 200 MILLIGRAM(S) [Concomitant]
  7. CYMBALTA (DULOXETINE HYDROCHLORIDE) [Concomitant]
  8. NSAID^S (NO INGREDIENTS/SUBSTANCES) [Concomitant]

REACTIONS (2)
  - ALANINE AMINOTRANSFERASE INCREASED [None]
  - ASPARTATE AMINOTRANSFERASE INCREASED [None]
